FAERS Safety Report 18781380 (Version 1)
Quarter: 2021Q1

REPORT INFORMATION
  Report Type: Spontaneous
  Country: ES (occurrence: ES)
  Receive Date: 20210125
  Receipt Date: 20210125
  Transmission Date: 20210419
  Serious: Yes (Other)
  Sender: FDA-Public Use
  Company Number: ES-PFIZER INC-2021049750

PATIENT
  Age: 46 Year
  Sex: Female

DRUGS (7)
  1. IODINE. [Suspect]
     Active Substance: IODINE
     Indication: SCAN WITH CONTRAST
     Dosage: UNK
     Route: 042
     Dates: start: 20200124, end: 20200124
  2. HIDRALAZINA [HYDRALAZINE HYDROCHLORIDE] [Suspect]
     Active Substance: HYDRALAZINE HYDROCHLORIDE
     Indication: HYPERTENSION
     Dosage: 12.5 MG, 2X/DAY (FREQUENCY:12 HOURS;)
     Route: 048
     Dates: start: 20200120, end: 20200127
  3. ACETYLSALICYLIC ACID [Concomitant]
     Active Substance: ASPIRIN
     Indication: PROPHYLAXIS
     Dosage: 100 MG, 1X/DAY
     Route: 048
     Dates: start: 20200118
  4. FITOMENADIONA [Concomitant]
     Active Substance: PHYTONADIONE
     Indication: DRUG LEVEL INCREASED
     Dosage: 2 MG, SINGLE
     Route: 042
     Dates: start: 20200119, end: 20200119
  5. CLOPIDOGREL [Concomitant]
     Active Substance: CLOPIDOGREL BISULFATE
     Indication: PROPHYLAXIS
     Dosage: 75 MG, 1X/DAY
     Route: 048
     Dates: start: 20200118
  6. FLUCONAZOLE. [Suspect]
     Active Substance: FLUCONAZOLE
     Indication: INFECTION
     Dosage: 100 MG, SINGLE
     Route: 048
     Dates: start: 20200123, end: 20200123
  7. ENOXAPARIN SODIUM. [Concomitant]
     Active Substance: ENOXAPARIN SODIUM
     Indication: PROPHYLAXIS
     Dosage: 20 MG, 1X/DAY
     Route: 058
     Dates: start: 20200122

REACTIONS (1)
  - Symmetrical drug-related intertriginous and flexural exanthema [Recovered/Resolved]

NARRATIVE: CASE EVENT DATE: 20200124
